FAERS Safety Report 8773079 (Version 3)
Quarter: 2012Q4

REPORT INFORMATION
  Report Type: Report from Study
  Country: US (occurrence: US)
  Receive Date: 20120907
  Receipt Date: 20120923
  Transmission Date: 20130627
  Serious: Yes (Hospitalization)
  Sender: FDA-Public Use
  Company Number: US-ABBOTT-12P-163-0974362-00

PATIENT
  Sex: Male
  Weight: 136.2 kg

DRUGS (1)
  1. HUMIRA [Suspect]
     Indication: PSORIASIS
     Dates: start: 201108

REACTIONS (5)
  - Intervertebral disc protrusion [Unknown]
  - Monoplegia [Unknown]
  - Peroneal nerve palsy [Unknown]
  - Back pain [Not Recovered/Not Resolved]
  - Back pain [Unknown]
